FAERS Safety Report 18769750 (Version 1)
Quarter: 2021Q1

REPORT INFORMATION
  Report Type: Spontaneous
  Country: CA (occurrence: CA)
  Receive Date: 20210121
  Receipt Date: 20210121
  Transmission Date: 20210419
  Serious: Yes (Other)
  Sender: FDA-Public Use
  Company Number: CA-TEVA-2021-CA-1870122

PATIENT
  Age: 84 Year
  Sex: Female

DRUGS (3)
  1. TEVA?PREGABALIN [Suspect]
     Active Substance: PREGABALIN
     Indication: NEUROPATHY PERIPHERAL
     Dosage: 50 MILLIGRAM DAILY;
     Dates: start: 2019, end: 2019
  2. TEVA?AMITRIPTYLINE [Suspect]
     Active Substance: AMITRIPTYLINE
     Indication: NEUROPATHY PERIPHERAL
     Dosage: 10 MILLIGRAM DAILY;
     Dates: start: 202001, end: 202009
  3. TEVA DULOXETINE [Suspect]
     Active Substance: DULOXETINE
     Indication: NEUROPATHY PERIPHERAL
     Dosage: 30 MILLIGRAM DAILY;
     Dates: start: 2020, end: 2020

REACTIONS (5)
  - Deep vein thrombosis [Recovered/Resolved]
  - Constipation [Recovered/Resolved]
  - Swelling [Recovered/Resolved]
  - Drug hypersensitivity [Unknown]
  - Neuropathy peripheral [Recovered/Resolved]

NARRATIVE: CASE EVENT DATE: 2019
